FAERS Safety Report 13910212 (Version 1)
Quarter: 2017Q3

REPORT INFORMATION
  Report Type: Spontaneous
  Country: US (occurrence: None)
  Receive Date: 20170822
  Receipt Date: 20170822
  Transmission Date: 20171127
  Serious: No
  Sender: FDA-Public Use
  Company Number: None

PATIENT
  Age: 71 Year
  Sex: Male

DRUGS (1)
  1. WARFARIN [Suspect]
     Active Substance: WARFARIN
     Indication: ATRIAL FIBRILLATION

REACTIONS (7)
  - Atrial enlargement [None]
  - Fall [None]
  - Subdural haematoma [None]
  - Brain midline shift [None]
  - Hemiparesis [None]
  - Refusal of treatment by patient [None]
  - International normalised ratio decreased [None]

NARRATIVE: CASE EVENT DATE: 20170417
